FAERS Safety Report 7321471-7 (Version None)
Quarter: 2011Q1

REPORT INFORMATION
  Report Type: 
  Country: None (occurrence: None)
  Receive Date: 20110228
  Receipt Date: 20100629
  Transmission Date: 20110831
  Serious: No
  Sender: FDA-Public Use
  Company Number: US-PFIZER INC-2010082134

PATIENT
  Sex: Female

DRUGS (4)
  1. CLONAZEPAM [Concomitant]
     Dosage: UNK
  2. TRILEPTAL [Concomitant]
     Dosage: UNK
  3. GEODON [Suspect]
     Dosage: DAILY AS 40MG IN MORNING AND 80 MG IN EVENING
     Route: 048
     Dates: start: 20080901
  4. PROZAC [Concomitant]
     Dosage: UNK
     Route: 048

REACTIONS (3)
  - FATIGUE [None]
  - FEELING ABNORMAL [None]
  - NAUSEA [None]
